FAERS Safety Report 5239892-5 (Version None)
Quarter: 2007Q1

REPORT INFORMATION
  Report Type: 
  Country: None (occurrence: None)
  Receive Date: 20070216
  Receipt Date: 20070208
  Transmission Date: 20070707
  Serious: Yes (Death, Hospitalization, Other)
  Sender: FDA-Public Use
  Company Number: US-ABBOTT-04P-163-0246742-00

PATIENT
  Sex: Female
  Weight: 54.934 kg

DRUGS (18)
  1. HUMIRA [Suspect]
     Indication: RHEUMATOID ARTHRITIS
     Route: 058
     Dates: start: 20030905, end: 20031016
  2. HUMIRA [Suspect]
     Indication: SCLERODERMA
  3. HYDROXYCHLOROQUINE PHOSPHATE [Concomitant]
     Indication: RHEUMATOID ARTHRITIS
     Route: 048
     Dates: start: 19980505
  4. HYDROXYCHLOROQUINE PHOSPHATE [Concomitant]
  5. METHOTREXATE [Concomitant]
     Indication: RHEUMATOID ARTHRITIS
     Route: 048
     Dates: start: 20030501
  6. PREDNISONE TAB [Concomitant]
     Indication: RHEUMATOID ARTHRITIS
     Route: 048
     Dates: start: 20030601, end: 20031009
  7. ALENDRONATE SODIUM [Concomitant]
     Indication: OSTEOPENIA
     Route: 048
     Dates: start: 20020513
  8. QUINAPRIL HCL [Concomitant]
     Indication: HYPERTENSION
     Route: 048
     Dates: start: 20021021
  9. HYDROCHLOROTHIAZIDE [Concomitant]
     Indication: HYPERTENSION
     Route: 048
     Dates: start: 20030113
  10. PARACETAMOL [Concomitant]
     Indication: RHEUMATOID ARTHRITIS
  11. PETHIDINE HYDROCHLORIDE [Concomitant]
     Indication: COLONOSCOPY
     Route: 042
     Dates: start: 20020715, end: 20020715
  12. DOXAZOSIN MESYLATE [Concomitant]
     Indication: DRUG USE FOR UNKNOWN INDICATION
     Dates: start: 20031009
  13. VERAPAMIL HYDROCHLORIDE [Concomitant]
     Indication: ACCELERATED HYPERTENSION
     Dates: start: 20031009
  14. VERAPAMIL HYDROCHLORIDE [Concomitant]
     Dates: start: 20030926
  15. VERAPAMIL HYDROCHLORIDE [Concomitant]
     Dates: start: 20030926
  16. BUCINDOLOL HYDROCHLORIDE [Concomitant]
     Indication: PAIN IN EXTREMITY
     Dates: start: 20030720
  17. BUCINDOLOL HYDROCHLORIDE [Concomitant]
     Indication: MUSCULOSKELETAL STIFFNESS
  18. PANTOPRAZOLE SODIUM [Concomitant]
     Indication: DRUG USE FOR UNKNOWN INDICATION

REACTIONS (25)
  - ANAEMIA [None]
  - APALLIC SYNDROME [None]
  - CARDIAC FAILURE CONGESTIVE [None]
  - CHRONIC OBSTRUCTIVE PULMONARY DISEASE [None]
  - COAGULOPATHY [None]
  - CONVULSION [None]
  - EAR HAEMORRHAGE [None]
  - EAR PAIN [None]
  - FALL [None]
  - FLAT AFFECT [None]
  - HAEMATURIA [None]
  - INTERNATIONAL NORMALISED RATIO INCREASED [None]
  - LISTLESS [None]
  - MENINGITIS PNEUMOCOCCAL [None]
  - PHARYNGOLARYNGEAL PAIN [None]
  - PNEUMONIA [None]
  - PROCEDURAL COMPLICATION [None]
  - PUNCTURE SITE HAEMORRHAGE [None]
  - RENAL CYST [None]
  - RESPIRATORY FAILURE [None]
  - SEPSIS [None]
  - STREPTOCOCCAL INFECTION [None]
  - UNRESPONSIVE TO STIMULI [None]
  - URINARY TRACT INFECTION [None]
  - VOMITING [None]
